FAERS Safety Report 6453734-1 (Version None)
Quarter: 2009Q4

REPORT INFORMATION
  Report Type: 
  Country: None (occurrence: None)
  Receive Date: 20091124
  Receipt Date: 20090902
  Transmission Date: 20100525
  Serious: No
  Sender: FDA-Public Use
  Company Number: US-BRISTOL-MYERS SQUIBB COMPANY-14764575

PATIENT
  Age: 7 Decade
  Sex: Female

DRUGS (1)
  1. ONGLYZA [Suspect]
     Dosage: 1 DOSAGEFORM = 1/2 TAB

REACTIONS (2)
  - RASH [None]
  - THROAT TIGHTNESS [None]
